FAERS Safety Report 6663260-2 (Version None)
Quarter: 2010Q1

REPORT INFORMATION
  Report Type: 
  Country: None (occurrence: None)
  Receive Date: 20100331
  Receipt Date: 20100331
  Transmission Date: 20100710
  Serious: No
  Sender: FDA-Public Use
  Company Number: None

PATIENT
  Sex: Male
  Weight: 95.3 kg

DRUGS (12)
  1. CYCLOPHOSPHAMIDE [Suspect]
     Dosage: 1284 MG
  2. DOXIL [Suspect]
     Dosage: 75 MG
  3. NEULASTA [Suspect]
     Dosage: 6 MG
  4. PREDNISOLONE [Suspect]
     Dosage: 400 MG
  5. RITUXIMAB (MOAB C2B8 ANTI CD20, CHIMERIC) [Suspect]
     Dosage: 803 MG
  6. VINCRISTINE SULFATE [Suspect]
     Dosage: 2 MG
  7. COREG [Concomitant]
  8. CRESTOR [Concomitant]
  9. HYTRIN [Concomitant]
  10. LISINOPRIL [Concomitant]
  11. PLAVIX [Concomitant]
  12. SYNTHROID [Concomitant]

REACTIONS (2)
  - MYELODYSPLASTIC SYNDROME [None]
  - PANCYTOPENIA [None]
